FAERS Safety Report 6414105-7 (Version None)
Quarter: 2009Q4

REPORT INFORMATION
  Report Type: 
  Country: None (occurrence: None)
  Receive Date: 20091026
  Receipt Date: 20091020
  Transmission Date: 20100525
  Serious: Yes (Hospitalization)
  Sender: FDA-Public Use
  Company Number: SE-MERCK-0910SWE00029

PATIENT
  Age: 77 Year
  Sex: Female

DRUGS (15)
  1. FOSAMAX [Suspect]
     Indication: OSTEOPOROSIS
     Route: 048
     Dates: start: 20060101, end: 20090910
  2. PREDNISOLONE [Suspect]
     Indication: RHEUMATOID ARTHRITIS
     Route: 048
  3. ETIDRONATE DISODIUM [Suspect]
     Indication: OSTEOPOROSIS
     Route: 048
     Dates: start: 20030101
  4. ACETAMINOPHEN [Concomitant]
     Route: 065
  5. IRBESARTAN [Concomitant]
     Route: 048
  6. OMEPRAZOLE [Concomitant]
     Route: 048
  7. LACTULOSE [Concomitant]
     Route: 065
  8. LEVOTHYROXINE SODIUM [Concomitant]
     Route: 048
  9. ACETAMINOPHEN [Concomitant]
     Route: 048
  10. FERROUS SULFATE [Concomitant]
     Route: 048
  11. FUROSEMIDE [Concomitant]
     Route: 048
  12. ASPIRIN [Concomitant]
     Route: 048
  13. CALCIUM CARBONATE AND CHOLECALCIFEROL [Concomitant]
     Route: 048
  14. TRAMADOL HYDROCHLORIDE [Concomitant]
     Route: 048
  15. CYANOCOBALAMIN AND FOLIC ACID AND PYRIDOXINE HYDROCHLORIDE [Concomitant]
     Route: 048

REACTIONS (1)
  - PATHOLOGICAL FRACTURE [None]
